FAERS Safety Report 10183116 (Version 1)
Quarter: 2014Q2

REPORT INFORMATION
  Report Type: Report from Study
  Country: CA (occurrence: CA)
  Receive Date: 20140520
  Receipt Date: 20140520
  Transmission Date: 20141212
  Serious: Yes (Other)
  Sender: FDA-Public Use
  Company Number: CA-JNJFOC-20140507709

PATIENT
  Age: 38 Year
  Sex: Male
  Weight: 106.5 kg

DRUGS (4)
  1. REMICADE [Suspect]
     Indication: CROHN^S DISEASE
     Route: 042
     Dates: start: 20121213
  2. PENTASA [Concomitant]
     Route: 065
  3. VITAMIN D [Concomitant]
     Route: 065
  4. PANTOLOC [Concomitant]
     Route: 065

REACTIONS (1)
  - Fistula [Unknown]
